FAERS Safety Report 21948767 (Version 1)
Quarter: 2023Q1

REPORT INFORMATION
  Report Type: Spontaneous
  Country: MA (occurrence: MA)
  Receive Date: 20230203
  Receipt Date: 20230203
  Transmission Date: 20230418
  Serious: Yes (Death, Hospitalization, Other)
  Sender: FDA-Public Use
  Company Number: MA-STERISCIENCE B.V.-2023-ST-000392

PATIENT
  Age: 52 Year
  Sex: Male

DRUGS (14)
  1. VANCOMYCIN [Suspect]
     Active Substance: VANCOMYCIN
     Indication: Septic shock
     Dosage: LOADING DOSE 1 GRAM
     Route: 051
  2. VANCOMYCIN [Suspect]
     Active Substance: VANCOMYCIN
     Dosage: MAINTENANCE DOSE 500 MILLIGRAM
     Route: 051
  3. CEFTRIAXONE [Suspect]
     Active Substance: CEFTRIAXONE
     Indication: Staphylococcal infection
     Dosage: 1 GRAM 12 HOURS
     Route: 051
  4. NOREPINEPHRINE [Suspect]
     Active Substance: NOREPINEPHRINE
     Indication: Septic shock
     Dosage: UNK
     Route: 065
  5. METRONIDAZOLE [Concomitant]
     Active Substance: METRONIDAZOLE
     Indication: Staphylococcal infection
     Dosage: 500 MILLIGRAM 24 HOURS
     Route: 051
  6. SODIUM BICARBONATE [Concomitant]
     Active Substance: SODIUM BICARBONATE
     Indication: Urine alkalinisation therapy
     Dosage: UNK
  7. INSULIN NOS [Concomitant]
     Active Substance: INSULIN NOS
     Indication: Diabetes mellitus
     Dosage: UNK
     Route: 065
  8. CINACALCET [Concomitant]
     Active Substance: CINACALCET
     Indication: Hyperparathyroidism secondary
     Dosage: 30 MILLIGRAM 0.5 DAY
     Route: 065
  9. VITAMIN D [Concomitant]
     Active Substance: VITAMIN D NOS
     Indication: Hyperparathyroidism secondary
     Dosage: 100000 INTERNATIONAL UNIT 15 DAYS
     Route: 048
  10. PREGABALIN [Concomitant]
     Active Substance: PREGABALIN
     Indication: Neuralgia
     Dosage: 25 MILLIGRAM, QD
     Route: 065
  11. TRAMADOL [Concomitant]
     Active Substance: TRAMADOL
     Indication: Neuralgia
     Dosage: 50 MILLIGRAM, QD
     Route: 065
  12. BENFOTIAMINE [Concomitant]
     Active Substance: BENFOTIAMINE
     Indication: Neuralgia
     Dosage: 100 MILLIGRAM, TID
     Route: 065
  13. ENOXAPARIN SODIUM [Concomitant]
     Active Substance: ENOXAPARIN SODIUM
     Indication: Prophylaxis
     Dosage: 0.4 MILLIGRAM, QD
     Route: 058
  14. OMEPRAZOLE [Concomitant]
     Active Substance: OMEPRAZOLE
     Indication: Prophylaxis
     Dosage: 20 MILLIGRAM, QD
     Route: 065

REACTIONS (1)
  - Drug ineffective [Fatal]
